FAERS Safety Report 5746765-8 (Version None)
Quarter: 2008Q2

REPORT INFORMATION
  Report Type: 
  Country: None (occurrence: None)
  Receive Date: 20080522
  Receipt Date: 20080513
  Transmission Date: 20081010
  Serious: Yes (Other)
  Sender: FDA-Public Use
  Company Number: US-PFIZER INC-2008031659

PATIENT
  Sex: Male
  Weight: 145.2 kg

DRUGS (12)
  1. CHANTIX [Suspect]
     Indication: SMOKING CESSATION THERAPY
     Route: 048
     Dates: start: 20080312, end: 20080428
  2. LITHIUM CARBONATE [Concomitant]
     Route: 048
  3. ALEVE [Concomitant]
     Indication: ARTHRITIS
     Route: 048
  4. GOODYS POWDERS [Concomitant]
     Indication: ARTHRITIS
     Route: 048
  5. CLARITIN-D [Concomitant]
     Indication: SINUS DISORDER
     Route: 048
  6. THORAZINE [Concomitant]
     Indication: BIPOLAR DISORDER
     Dosage: DAILY DOSE:30MG
     Route: 048
  7. ROBITUSSIN-DM [Concomitant]
     Indication: SINUS DISORDER
  8. CLARITIN [Concomitant]
     Indication: SINUS DISORDER
  9. LITHIUM CARBONATE [Concomitant]
     Indication: BIPOLAR DISORDER
     Route: 048
  10. VITAMIN B-12 [Concomitant]
     Indication: BIPOLAR DISORDER
  11. VITAMINS [Concomitant]
     Indication: PROSTATIC DISORDER
  12. ALL OTHER THERAPEUTIC PRODUCTS [Concomitant]

REACTIONS (4)
  - AGGRESSION [None]
  - AGITATION [None]
  - ARTHRITIS [None]
  - SUICIDAL BEHAVIOUR [None]
